FAERS Safety Report 17178221 (Version 1)
Quarter: 2019Q4

REPORT INFORMATION
  Report Type: Spontaneous
  Country: US (occurrence: US)
  Receive Date: 20191219
  Receipt Date: 20191219
  Transmission Date: 20200122
  Serious: Yes (Other)
  Sender: FDA-Public Use
  Company Number: US-COOPERSURGICAL, INC.-US-2019CPS000343

PATIENT

DRUGS (1)
  1. PARAGARD T 380A [Suspect]
     Active Substance: COPPER
     Indication: PRODUCT USED FOR UNKNOWN INDICATION
     Route: 015

REACTIONS (5)
  - Drug ineffective [Recovered/Resolved]
  - Pregnancy with contraceptive device [Recovered/Resolved]
  - Embedded device [Unknown]
  - Pain [Unknown]
  - Device dislocation [Unknown]
